FAERS Safety Report 5692316-6 (Version None)
Quarter: 2008Q2

REPORT INFORMATION
  Report Type: 
  Country: None (occurrence: None)
  Receive Date: 20080402
  Receipt Date: 20080321
  Transmission Date: 20081010
  Serious: Yes (Hospitalization)
  Sender: FDA-Public Use
  Company Number: CA-BRISTOL-MYERS SQUIBB COMPANY-14123475

PATIENT
  Sex: Male
  Weight: 72 kg

DRUGS (10)
  1. ERBITUX [Suspect]
     Indication: SQUAMOUS CELL CARCINOMA
     Dates: start: 20080229, end: 20080304
  2. CISPLATIN [Suspect]
     Indication: SQUAMOUS CELL CARCINOMA
  3. RADIATION THERAPY [Suspect]
     Indication: SQUAMOUS CELL CARCINOMA
     Dosage: 1 DOSAGE FORM = 6800 GY IN 34 FRACTIONS IN 44 DAYS.
     Dates: start: 20080229, end: 20080305
  4. AVELOX [Concomitant]
  5. CIPRO [Concomitant]
  6. VANCOMYCIN [Concomitant]
     Route: 042
  7. LACTULOSE [Concomitant]
  8. NEUPOGEN [Concomitant]
  9. OXY-IR [Concomitant]
  10. OXYCONTIN [Concomitant]

REACTIONS (8)
  - DEHYDRATION [None]
  - DYSPHAGIA [None]
  - GRANULOCYTE COUNT DECREASED [None]
  - HYPONATRAEMIA [None]
  - LYMPHOPENIA [None]
  - RADIATION SKIN INJURY [None]
  - STOMATITIS [None]
  - WHITE BLOOD CELL COUNT DECREASED [None]
